FAERS Safety Report 6039862-3 (Version None)
Quarter: 2009Q1

REPORT INFORMATION
  Report Type: 
  Country: None (occurrence: None)
  Receive Date: 20090116
  Receipt Date: 20090107
  Transmission Date: 20090719
  Serious: Yes (Hospitalization)
  Sender: FDA-Public Use
  Company Number: CA-BAYER-200910731GPV

PATIENT
  Age: 16 Month
  Sex: Male

DRUGS (2)
  1. NAPROXEN [Suspect]
     Indication: JUVENILE ARTHRITIS
     Route: 065
  2. TRIAMCINOLONE HEXACETONIDE [Concomitant]
     Indication: ARTHRALGIA
     Route: 014

REACTIONS (4)
  - HYPOALBUMINAEMIA [None]
  - IRON DEFICIENCY ANAEMIA [None]
  - OEDEMA [None]
  - PROTEIN-LOSING GASTROENTEROPATHY [None]
